FAERS Safety Report 6781839-4 (Version None)
Quarter: 2010Q2

REPORT INFORMATION
  Report Type: 
  Country: None (occurrence: None)
  Receive Date: 20100621
  Receipt Date: 20100609
  Transmission Date: 20101027
  Serious: Yes (Other)
  Sender: FDA-Public Use
  Company Number: PHHY2010DE37677

PATIENT
  Age: 89 Year
  Sex: Female

DRUGS (5)
  1. VOLTAREN [Suspect]
     Indication: BACK PAIN
     Dosage: 1 DF, PRN
     Route: 048
     Dates: end: 20100601
  2. ATACAND [Concomitant]
     Dosage: UNK
  3. THYROID THERAPY [Concomitant]
     Dosage: UNK
  4. ISCOVER [Concomitant]
     Dosage: UNK
  5. MUSARIL [Concomitant]
     Dosage: UNK

REACTIONS (3)
  - ARRHYTHMIA [None]
  - BLOOD PRESSURE DECREASED [None]
  - HEART RATE DECREASED [None]
